FAERS Safety Report 19972248 (Version 1)
Quarter: 2021Q4

REPORT INFORMATION
  Report Type: Spontaneous
  Country: PT (occurrence: PT)
  Receive Date: 20211020
  Receipt Date: 20211020
  Transmission Date: 20220304
  Serious: Yes (Other)
  Sender: FDA-Public Use
  Company Number: PT-LUPIN PHARMACEUTICALS INC.-2021-19862

PATIENT
  Age: 67 Year
  Sex: Female

DRUGS (3)
  1. MORPHINE [Suspect]
     Active Substance: MORPHINE
     Indication: Anaesthesia
     Dosage: 2.5 MILLIGRAM, SINGLE (TOTAL DOSE)
     Route: 037
  2. LIDOCAINE [Concomitant]
     Active Substance: LIDOCAINE
     Indication: Anaesthesia
     Dosage: 5 MILLILITER
     Route: 008
  3. ROPIVACAINE. [Concomitant]
     Active Substance: ROPIVACAINE HYDROCHLORIDE
     Indication: Anaesthesia
     Dosage: 20 MILLIGRAM, SINGLE (PERFUSION)
     Route: 065

REACTIONS (3)
  - Overdose [Unknown]
  - Respiratory depression [Not Recovered/Not Resolved]
  - Nerve block [Recovered/Resolved]
